FAERS Safety Report 5706878-3 (Version None)
Quarter: 2008Q2

REPORT INFORMATION
  Report Type: 
  Country: None (occurrence: None)
  Receive Date: 20080416
  Receipt Date: 20080404
  Transmission Date: 20081010
  Serious: Yes (Hospitalization)
  Sender: FDA-Public Use
  Company Number: US-ELI_LILLY_AND_COMPANY-US200804001226

PATIENT
  Sex: Female

DRUGS (8)
  1. HUMULIN R [Suspect]
     Indication: DIABETES MELLITUS
     Dates: start: 19910101
  2. HUMULIN R [Suspect]
     Dates: start: 19910101
  3. HUMULIN R [Suspect]
     Dates: start: 19910101
  4. HUMULIN R [Suspect]
     Dates: start: 19910101
  5. HUMULIN N [Suspect]
     Dosage: UNK, UNK
     Dates: start: 19910101, end: 19910101
  6. ILETIN I [Suspect]
     Dates: end: 19910101
  7. ILETIN [Suspect]
     Dates: end: 19910101
  8. LENTE ILETIN INSULIN [Suspect]
     Dosage: UNK, UNK
     Dates: end: 19910101

REACTIONS (5)
  - BLOOD GLUCOSE INCREASED [None]
  - DRUG INEFFECTIVE [None]
  - HOSPITALISATION [None]
  - RASH PAPULAR [None]
  - THERAPEUTIC RESPONSE DELAYED [None]
